FAERS Safety Report 4454914-7 (Version None)
Quarter: 2004Q3

REPORT INFORMATION
  Report Type: 
  Country: None (occurrence: None)
  Receive Date: 20040921
  Receipt Date: 20040902
  Transmission Date: 20050211
  Serious: Yes (Hospitalization)
  Sender: FDA-Public Use
  Company Number: FR-GLAXOSMITHKLINE-B0344109A

PATIENT
  Age: 61 Year
  Sex: Male

DRUGS (16)
  1. ZOVIRAX [Suspect]
     Indication: HERPES ZOSTER
     Dosage: 375MG TWICE PER DAY
     Route: 042
     Dates: start: 20040810, end: 20040816
  2. OFLOCET [Suspect]
     Route: 042
     Dates: start: 20040814, end: 20040818
  3. CELLCEPT [Suspect]
     Dosage: 500MG TWICE PER DAY
     Route: 048
     Dates: start: 20040811
  4. TIBERAL [Concomitant]
     Dosage: 1G PER DAY
     Route: 042
     Dates: start: 20040814, end: 20040823
  5. CEFTRIAXONE [Concomitant]
     Route: 042
     Dates: start: 20040814, end: 20040823
  6. NEORAL [Concomitant]
     Dosage: 10MG TWICE PER DAY
     Route: 048
     Dates: start: 20040624
  7. SANDIMMUNE [Concomitant]
     Dosage: 1.5AMP PER DAY
     Route: 042
     Dates: start: 20040814, end: 20040818
  8. SOLU-MEDROL [Concomitant]
     Dosage: 4G PER DAY
     Route: 042
     Dates: start: 20040814, end: 20040816
  9. CORTANCYL [Concomitant]
     Route: 048
     Dates: start: 20040810
  10. IMOVANE [Concomitant]
     Dosage: 1TAB PER DAY
     Route: 048
     Dates: start: 20040701
  11. ZOLOFT [Concomitant]
     Dosage: 50MG PER DAY
     Route: 048
     Dates: start: 20040810, end: 20040813
  12. PRAVASTATIN [Concomitant]
     Dosage: 20MG PER DAY
     Route: 048
     Dates: start: 20040810, end: 20040813
  13. NEURONTIN [Concomitant]
     Dosage: 1TAB PER DAY
     Route: 048
     Dates: start: 20040810
  14. BISOPROLOL FUMARATE [Concomitant]
     Dosage: 1TAB PER DAY
     Route: 048
     Dates: start: 20040810
  15. AMLOR [Concomitant]
     Dosage: 10MG PER DAY
     Route: 048
     Dates: start: 20040813
  16. XATRAL LP [Concomitant]
     Dosage: 10MG PER DAY
     Route: 048
     Dates: start: 20040810

REACTIONS (8)
  - ABDOMINAL PAIN [None]
  - BLOOD AMYLASE INCREASED [None]
  - BLOOD CREATININE INCREASED [None]
  - DRUG INTERACTION [None]
  - HEPATIC FUNCTION ABNORMAL [None]
  - LIPASE INCREASED [None]
  - PANCREATITIS [None]
  - RENAL FAILURE ACUTE [None]
